FAERS Safety Report 23183657 (Version 1)
Quarter: 2023Q4

REPORT INFORMATION
  Report Type: Other
  Country: None (occurrence: US)
  Receive Date: 20231114
  Receipt Date: 20231114
  Transmission Date: 20240110
  Serious: Yes (Life-Threatening)
  Sender: FDA-Public Use
  Company Number: US-B.Braun Medical Inc.-2148215

PATIENT
  Age: 54 Year
  Sex: Female

DRUGS (8)
  1. SODIUM CHLORIDE [Suspect]
     Active Substance: SODIUM CHLORIDE
     Indication: Intentional overdose
  2. ACTIVATED CHARCOAL [Suspect]
     Active Substance: ACTIVATED CHARCOAL
  3. GLUCAGON [Suspect]
     Active Substance: GLUCAGON\GLUCAGON HYDROCHLORIDE\WATER
  4. CALCIUM GLUCONATE [Suspect]
     Active Substance: CALCIUM GLUCONATE
  5. PHENYLEPHRINE [Concomitant]
     Active Substance: PHENYLEPHRINE HYDROCHLORIDE
  6. NOREPINEPHRINE [Concomitant]
     Active Substance: NOREPINEPHRINE
  7. UNSPECIFIED INGREDIENT [Concomitant]
     Active Substance: UNSPECIFIED INGREDIENT
  8. ANTIHISTAMINES NOS [Concomitant]
     Active Substance: ANTIHISTAMINES NOS

REACTIONS (1)
  - Drug ineffective [None]
